FAERS Safety Report 5383214-6 (Version None)
Quarter: 2007Q3

REPORT INFORMATION
  Report Type: 
  Country: None (occurrence: None)
  Receive Date: 20070710
  Receipt Date: 20070709
  Transmission Date: 20080115
  Serious: Yes (Other)
  Sender: FDA-Public Use
  Company Number: ES-BRISTOL-MYERS SQUIBB COMPANY-13839675

PATIENT
  Age: 30 Year
  Sex: Male

DRUGS (13)
  1. AMOXICILLIN TRIHYDRATE [Suspect]
     Indication: PYREXIA
  2. AMOXICILLIN TRIHYDRATE [Suspect]
     Indication: HEADACHE
  3. AMOXICILLIN TRIHYDRATE [Suspect]
     Indication: COUGH
  4. AMOXICILLIN TRIHYDRATE [Suspect]
     Indication: LYMPHADENOPATHY
  5. AMOXICILLIN TRIHYDRATE [Suspect]
     Indication: RASH
  6. AMOXICILLIN TRIHYDRATE [Suspect]
     Indication: APHTHOUS STOMATITIS
  7. CARBAMAZEPINE [Suspect]
  8. ERYTHROMYCIN [Suspect]
     Indication: PYREXIA
  9. ERYTHROMYCIN [Suspect]
     Indication: HEADACHE
  10. ERYTHROMYCIN [Suspect]
     Indication: COUGH
  11. ERYTHROMYCIN [Suspect]
     Indication: LYMPHADENOPATHY
  12. ERYTHROMYCIN [Suspect]
     Indication: RASH
  13. ERYTHROMYCIN [Suspect]
     Indication: APHTHOUS STOMATITIS

REACTIONS (6)
  - ANGIOEDEMA [None]
  - EOSINOPHILIA [None]
  - HEPATOTOXICITY [None]
  - LEUKOCYTOSIS [None]
  - PROTEINURIA [None]
  - SKIN TEST POSITIVE [None]
